FAERS Safety Report 6524264-3 (Version None)
Quarter: 2009Q4

REPORT INFORMATION
  Report Type: 
  Country: None (occurrence: None)
  Receive Date: 20091231
  Receipt Date: 20091223
  Transmission Date: 20100525
  Serious: Yes (Other)
  Sender: FDA-Public Use
  Company Number: US-GENENTECH-296304

PATIENT
  Sex: Male
  Weight: 54.5 kg

DRUGS (1)
  1. NUTROPIN [Suspect]
     Indication: BODY HEIGHT BELOW NORMAL
     Dosage: 2.2 MG, QD
     Route: 058
     Dates: start: 20090929, end: 20091221

REACTIONS (2)
  - ARTHRALGIA [None]
  - JOINT DISLOCATION [None]
